FAERS Safety Report 6540451-2 (Version None)
Quarter: 2010Q1

REPORT INFORMATION
  Report Type: 
  Country: None (occurrence: None)
  Receive Date: 20100113
  Receipt Date: 20100107
  Transmission Date: 20100710
  Serious: Yes (Hospitalization)
  Sender: FDA-Public Use
  Company Number: WAES 0807AUS00208

PATIENT
  Age: 53 Year
  Sex: Male

DRUGS (15)
  1. TAB RALTEGRAVIR POTASSIUM [Suspect]
     Indication: HIV INFECTION
     Dosage: 400 MG/BID PO
     Route: 048
     Dates: start: 20080312
  2. KIVEXA [Concomitant]
  3. LYRICA [Concomitant]
  4. SOMAC [Concomitant]
  5. AZITHROMYCIN [Concomitant]
  6. CANDESARTAN CILEXETIL (+) HDYROCHLOROTHI [Concomitant]
  7. ESOMEPRAZOLE [Concomitant]
  8. ETAVIRINE [Concomitant]
  9. FLUCONAZOLE [Concomitant]
  10. MARAVIROC [Concomitant]
  11. PRAZOSIN HYDROCHLORIDE [Concomitant]
  12. SOTALOL HYDROCHLORIDE [Concomitant]
  13. TENOFOVIR [Concomitant]
  14. VALACYCLOVIR HCL [Concomitant]
  15. VALPROATE SODIUM [Concomitant]

REACTIONS (6)
  - ALANINE AMINOTRANSFERASE INCREASED [None]
  - ASPARTATE AMINOTRANSFERASE INCREASED [None]
  - BLOOD CREATINE PHOSPHOKINASE INCREASED [None]
  - BLOOD LACTATE DEHYDROGENASE INCREASED [None]
  - BLOOD URIC ACID INCREASED [None]
  - POLYARTHRITIS [None]
